FAERS Safety Report 17035147 (Version 1)
Quarter: 2019Q4

REPORT INFORMATION
  Report Type: Other
  Country: CN (occurrence: CN)
  Receive Date: 20191115
  Receipt Date: 20191115
  Transmission Date: 20200122
  Serious: Yes (Other)
  Sender: FDA-Public Use
  Company Number: CN-MERZ PHARMACEUTICALS GMBH-19-04515

PATIENT
  Age: 34 Year
  Sex: Female

DRUGS (2)
  1. BOTULINUM TOXIN TYPE A [Suspect]
     Active Substance: BOTULINUM TOXIN TYPE A
     Indication: NEUROMUSCULAR BLOCKING THERAPY
  2. BOTULINUM TOXIN TYPE A [Suspect]
     Active Substance: BOTULINUM TOXIN TYPE A
     Indication: NEUROMUSCULAR BLOCKING THERAPY

REACTIONS (4)
  - Off label use [Unknown]
  - Product administration error [Unknown]
  - Mycobacterium abscessus infection [Recovered/Resolved with Sequelae]
  - Injection site infection [Recovered/Resolved with Sequelae]
